FAERS Safety Report 16784496 (Version 2)
Quarter: 2019Q3

REPORT INFORMATION
  Report Type: Spontaneous
  Country: DE (occurrence: DE)
  Receive Date: 20190909
  Receipt Date: 20190920
  Transmission Date: 20191005
  Serious: Yes (Other)
  Sender: FDA-Public Use
  Company Number: DE-SA-2019SA229940

PATIENT
  Age: 55 Year
  Sex: Male
  Weight: 90 kg

DRUGS (2)
  1. DUPIXENT [Suspect]
     Active Substance: DUPILUMAB
     Dosage: 1 DF, QOW
     Route: 058
  2. DUPIXENT [Suspect]
     Active Substance: DUPILUMAB
     Indication: DERMATITIS ATOPIC
     Dosage: 600 MG, 1X
     Route: 058
     Dates: start: 20190531, end: 20190531

REACTIONS (5)
  - Folliculitis [Recovering/Resolving]
  - Acne cystic [Recovering/Resolving]
  - Condition aggravated [Recovering/Resolving]
  - Pyoderma [Recovering/Resolving]
  - Purulent discharge [Recovering/Resolving]

NARRATIVE: CASE EVENT DATE: 2019
